FAERS Safety Report 8589873 (Version 11)
Quarter: 2014Q1

REPORT INFORMATION
  Report Type: Spontaneous
  Country: JP (occurrence: JP)
  Receive Date: 20120601
  Receipt Date: 20140206
  Transmission Date: 20141002
  Serious: Yes (Life-Threatening, Hospitalization, Other)
  Sender: FDA-Public Use
  Company Number: PHHY2012JP045613

PATIENT
  Age: 46 Year
  Sex: Male

DRUGS (45)
  1. CLOZARIL (CLOZAPINE) [Suspect]
     Indication: SCHIZOPHRENIA, PARANOID TYPE
     Dosage: 12.5 MG, DAILY
     Route: 048
     Dates: start: 20110330, end: 20110330
  2. CLOZARIL (CLOZAPINE) [Suspect]
     Dosage: 25 MG, DAILY
     Route: 048
     Dates: start: 20110331, end: 20110402
  3. CLOZARIL (CLOZAPINE) [Suspect]
     Dosage: 50 MG, DAILY
     Route: 048
     Dates: start: 20110403, end: 20110405
  4. CLOZARIL (CLOZAPINE) [Suspect]
     Dosage: 75 MG, DAILY
     Route: 048
     Dates: start: 20110406, end: 20110407
  5. CLOZARIL (CLOZAPINE) [Suspect]
     Dosage: 100 MG, DAILY
     Route: 048
     Dates: start: 20110408, end: 20110409
  6. CLOZARIL (CLOZAPINE) [Suspect]
     Dosage: 125 MG, DAILY
     Route: 048
     Dates: start: 20110410, end: 20110412
  7. CLOZARIL (CLOZAPINE) [Suspect]
     Dosage: 150 MG, DAILY
     Route: 048
     Dates: start: 20110413, end: 20110415
  8. CLOZARIL (CLOZAPINE) [Suspect]
     Dosage: 175 MG, DAILY
     Route: 048
     Dates: start: 20110416, end: 20110418
  9. CLOZARIL (CLOZAPINE) [Suspect]
     Dosage: 200 MG, DAILY
     Route: 048
     Dates: start: 20110419, end: 20110422
  10. CLOZARIL (CLOZAPINE) [Suspect]
     Dosage: 250 MG, DAILY
     Route: 048
     Dates: start: 20110423, end: 20110426
  11. CLOZARIL (CLOZAPINE) [Suspect]
     Dosage: 300 MG, DAILY
     Route: 048
     Dates: start: 20110427, end: 20110510
  12. CLOZARIL (CLOZAPINE) [Suspect]
     Dosage: 250 MG, DAILY
     Route: 048
     Dates: start: 20110511, end: 20110621
  13. CLOZARIL (CLOZAPINE) [Suspect]
     Dosage: 225MG, DAILY
     Route: 048
     Dates: start: 20110622, end: 20110712
  14. CLOZARIL (CLOZAPINE) [Suspect]
     Dosage: 200 MG, DAILY
     Route: 048
     Dates: start: 20110713
  15. CLOZARIL (CLOZAPINE) [Suspect]
     Dosage: 275 MG, UNK
     Route: 048
     Dates: start: 20120331, end: 20120518
  16. CLOZARIL (CLOZAPINE) [Suspect]
     Dosage: 12.5 MG, DAILY
     Route: 048
     Dates: start: 20120926, end: 20120926
  17. CLOZARIL (CLOZAPINE) [Suspect]
     Dosage: 25 MG, DAILY
     Route: 048
     Dates: start: 20120927, end: 20120929
  18. CLOZARIL (CLOZAPINE) [Suspect]
     Dosage: 50 MG, DAILY
     Route: 048
     Dates: start: 20120930, end: 20121001
  19. CLOZARIL (CLOZAPINE) [Suspect]
     Dosage: 75 MG, DAILY
     Route: 048
     Dates: start: 20121002, end: 20121003
  20. CLOZARIL (CLOZAPINE) [Suspect]
     Dosage: 100 MG, DAILY
     Route: 048
     Dates: start: 20121004, end: 20121005
  21. CLOZARIL (CLOZAPINE) [Suspect]
     Dosage: 125 MG, DAILY
     Route: 048
     Dates: start: 20121006, end: 20121009
  22. CLOZARIL (CLOZAPINE) [Suspect]
     Dosage: 150 MG, DAILY
     Route: 048
     Dates: start: 20121010, end: 20121012
  23. CLOZARIL (CLOZAPINE) [Suspect]
     Dosage: 175 MG, DAILY
     Route: 048
     Dates: start: 20121013, end: 20121016
  24. CLOZARIL (CLOZAPINE) [Suspect]
     Dosage: 200 MG, DAILY
     Route: 048
     Dates: start: 20121017, end: 20121028
  25. CLOZARIL (CLOZAPINE) [Suspect]
     Dosage: 175 MG, DAILY
     Route: 048
     Dates: start: 20121029, end: 20121120
  26. CLOZARIL (CLOZAPINE) [Suspect]
     Dosage: 200 MG, DAILY
     Route: 048
     Dates: start: 20121121, end: 20130330
  27. CLOZARIL (CLOZAPINE) [Suspect]
     Dosage: 275 MG PER DAY
  28. RISPERIDONE [Concomitant]
     Dosage: 8 MG,  A DAY
     Route: 048
     Dates: start: 20110330, end: 20110421
  29. RISPERIDONE [Concomitant]
     Dosage: 6 MG, UNK
     Route: 048
  30. RISPERIDONE [Concomitant]
     Dosage: 4 MG, UNK
     Route: 048
  31. RISPERIDONE [Concomitant]
     Dosage: 2 MG, UNK
     Route: 048
     Dates: end: 20110421
  32. RISPERIDONE [Concomitant]
     Dosage: 10 MG, QD
  33. BROVARIN [Concomitant]
     Indication: SCHIZOPHRENIA, PARANOID TYPE
     Dosage: 300 MG, UNK
     Route: 048
     Dates: end: 20110411
  34. RESTAMIN A [Concomitant]
     Indication: SCHIZOPHRENIA, PARANOID TYPE
     Dosage: 50 MG, UNK
     Route: 048
     Dates: end: 20110411
  35. JANUVIA [Concomitant]
     Dosage: 25 MG, UNK
     Route: 048
     Dates: start: 20110428, end: 20110511
  36. GLYCORAN [Concomitant]
     Dosage: 500 MG, UNK
     Route: 048
     Dates: start: 20110428, end: 20110705
  37. LIMAS [Concomitant]
     Indication: SCHIZOPHRENIA, PARANOID TYPE
     Dosage: 400 MG, UNK
     Route: 048
     Dates: start: 20110810
  38. LIMAS [Concomitant]
     Dosage: 600 MG, UNK
     Route: 048
     Dates: end: 20120518
  39. PURSENNID [Concomitant]
     Indication: PROPHYLAXIS
     Dosage: 12 MG, UNK
     Route: 048
     Dates: start: 20120331, end: 20120518
  40. OLANZAPINE [Concomitant]
     Dosage: 30 MG, QD (FOR 4 WEEKS)
  41. OLANZAPINE [Concomitant]
     Dosage: 10 MG, QD
  42. GANATON [Concomitant]
     Indication: CONSTIPATION PROPHYLAXIS
     Dosage: 150 MG, UNK
     Route: 048
     Dates: start: 20120719
  43. SCOPOLIA CARNIOLICA [Concomitant]
     Dosage: 30 MG, UNK
     Route: 048
     Dates: start: 20120729
  44. FLUPHENAZINE [Concomitant]
     Dosage: 10 MG PER DAY
  45. OMEPRAZOLE [Concomitant]
     Dosage: UNK

REACTIONS (33)
  - Appendicitis [Recovered/Resolved]
  - Abdominal pain [Not Recovered/Not Resolved]
  - Abdominal pain upper [Unknown]
  - Abdominal discomfort [Unknown]
  - Vomiting [Recovered/Resolved]
  - Pyrexia [Not Recovered/Not Resolved]
  - C-reactive protein increased [Unknown]
  - White blood cell count increased [Not Recovered/Not Resolved]
  - Ileus [Recovered/Resolved]
  - Neutrophil count increased [Unknown]
  - Hallucination [Unknown]
  - Abnormal behaviour [Unknown]
  - Gastrointestinal perforation [Recovered/Resolved]
  - Large intestine perforation [Unknown]
  - Abdominal rebound tenderness [Unknown]
  - Internal hernia [Unknown]
  - Peritonitis [Recovered/Resolved]
  - Bowel movement irregularity [Unknown]
  - Megacolon [Unknown]
  - Abdominal adhesions [Unknown]
  - Large intestinal stenosis [Unknown]
  - Fibrin D dimer increased [Unknown]
  - Thrombosis [Recovered/Resolved]
  - Delusion [Unknown]
  - Hyperglycaemia [Unknown]
  - Faecaloma [Unknown]
  - Constipation [Recovered/Resolved]
  - Pulmonary embolism [Unknown]
  - Intestinal obstruction [Unknown]
  - Large intestinal obstruction [Unknown]
  - Abdominal distension [Recovered/Resolved]
  - Deep vein thrombosis [Unknown]
  - Blood glucose increased [Unknown]
